FAERS Safety Report 16004056 (Version 1)
Quarter: 2019Q1

REPORT INFORMATION
  Report Type: Spontaneous
  Country: US (occurrence: US)
  Receive Date: 20190129
  Receipt Date: 20190129
  Transmission Date: 20190418
  Serious: No
  Sender: FDA-Public Use
  Company Number: None

PATIENT
  Age: 53 Year
  Sex: Male

DRUGS (1)
  1. ENTYVIO [Suspect]
     Active Substance: VEDOLIZUMAB
     Dates: start: 20181010

REACTIONS (3)
  - Condition aggravated [None]
  - Off label use [None]
  - Crohn^s disease [None]

NARRATIVE: CASE EVENT DATE: 20190129
